FAERS Safety Report 4315597-X (Version None)
Quarter: 2004Q1

REPORT INFORMATION
  Report Type: 
  Country: None (occurrence: None)
  Receive Date: 20040309
  Receipt Date: 20040223
  Transmission Date: 20041129
  Serious: Yes (Other)
  Sender: FDA-Public Use
  Company Number: US_0402101070

PATIENT
  Age: 12 Year
  Sex: Male
  Weight: 62 kg

DRUGS (1)
  1. STRATTERA [Suspect]
     Indication: ATTENTION DEFICIT/HYPERACTIVITY DISORDER
     Dosage: 60 MG/ 1 DAY
     Dates: start: 20031201, end: 20040201

REACTIONS (3)
  - ARRHYTHMIA [None]
  - CHEST PAIN [None]
  - VENTRICULAR EXTRASYSTOLES [None]
